FAERS Safety Report 8295463 (Version 2)
Quarter: 2015Q4

REPORT INFORMATION
  Report Type: Spontaneous
  Country: US (occurrence: US)
  Receive Date: 20111216
  Receipt Date: 20151002
  Transmission Date: 20160305
  Serious: No
  Sender: FDA-Public Use
  Company Number: US-GLAXOSMITHKLINE-A0945808A

PATIENT
  Sex: Male

DRUGS (5)
  1. COREG CR [Suspect]
     Active Substance: CARVEDILOL PHOSPHATE
     Indication: HYPERTENSION
     Dosage: 80 MG, 1D
     Route: 048
     Dates: start: 2009
  2. COREG CR [Suspect]
     Active Substance: CARVEDILOL PHOSPHATE
     Indication: ANXIETY
  3. BENICAR [Suspect]
     Active Substance: OLMESARTAN MEDOXOMIL
     Indication: PRODUCT USED FOR UNKNOWN INDICATION
     Route: 048
     Dates: start: 20110909
  4. VALIUM [Concomitant]
     Active Substance: DIAZEPAM
  5. COREG CR [Suspect]
     Active Substance: CARVEDILOL PHOSPHATE
     Indication: TACHYCARDIA
     Dosage: 80 MG, UNK
     Route: 048

REACTIONS (6)
  - Blood pressure increased [Unknown]
  - Somnolence [Unknown]
  - Asthenia [Unknown]
  - Expired product administered [Unknown]
  - Weight decreased [Unknown]
  - Fatigue [Unknown]

NARRATIVE: CASE EVENT DATE: 2009
